FAERS Safety Report 7183796-8 (Version None)
Quarter: 2010Q4

REPORT INFORMATION
  Report Type: 
  Country: None (occurrence: None)
  Receive Date: 20101210
  Receipt Date: 20101125
  Transmission Date: 20110411
  Serious: Yes (Other)
  Sender: FDA-Public Use
  Company Number: 2010MA004432

PATIENT
  Age: 17 Year
  Sex: Female

DRUGS (3)
  1. FLUOXETINE [Suspect]
     Indication: DEPRESSED MOOD
     Dosage: 20 MG; QD;
     Dates: start: 20100702
  2. CONCERTA [Suspect]
     Indication: ATTENTION DEFICIT/HYPERACTIVITY DISORDER
     Dosage: 27 MG; QD; PO
     Route: 048
     Dates: start: 20100722
  3. METHYLPHENIDATE [Concomitant]

REACTIONS (5)
  - AGGRESSION [None]
  - ANXIETY [None]
  - INTENTIONAL SELF-INJURY [None]
  - STRESS [None]
  - SUICIDAL IDEATION [None]
